FAERS Safety Report 4716301-3 (Version None)
Quarter: 2005Q3

REPORT INFORMATION
  Report Type: 
  Country: None (occurrence: None)
  Receive Date: 20050718
  Receipt Date: 20050407
  Transmission Date: 20060218
  Serious: No
  Sender: FDA-Public Use
  Company Number: GB-ABBOTT-05P-167-0296865-00

PATIENT
  Sex: Male

DRUGS (5)
  1. EPILIM [Suspect]
     Indication: BIPOLAR DISORDER
     Route: 065
     Dates: start: 20010501
  2. EPILIM [Suspect]
     Route: 065
     Dates: end: 20050401
  3. AMISULPRIDE [Concomitant]
     Indication: MANIA
     Route: 065
     Dates: start: 20010501, end: 20020512
  4. CLONAZEPAM [Concomitant]
     Indication: MANIA
     Route: 065
     Dates: start: 20010501, end: 20020501
  5. ZOPICLONE [Concomitant]
     Indication: SLEEP DISORDER
     Route: 065
     Dates: start: 20010501, end: 20020513

REACTIONS (3)
  - BACK PAIN [None]
  - BLOOD AMYLASE ABNORMAL [None]
  - PANCREATIC CYST [None]
